FAERS Safety Report 5769508-0 (Version None)
Quarter: 2008Q2

REPORT INFORMATION
  Report Type: 
  Country: None (occurrence: None)
  Receive Date: 20080612
  Receipt Date: 20080331
  Transmission Date: 20081010
  Serious: No
  Sender: FDA-Public Use
  Company Number: US-ABBOTT-08P-163-0445032-00

PATIENT
  Sex: Female

DRUGS (6)
  1. HUMIRA [Suspect]
     Indication: RHEUMATOID ARTHRITIS
     Route: 058
     Dates: start: 20080330
  2. HUMIRA [Suspect]
     Route: 050
     Dates: start: 20080229, end: 20080314
  3. METHOTREXATE [Concomitant]
     Indication: RHEUMATOID ARTHRITIS
     Route: 048
  4. LEVOTHYROXINE SODIUM [Concomitant]
     Indication: AUTOIMMUNE THYROIDITIS
     Route: 048
  5. CETIRIZINE HYDROCHLORIDE [Concomitant]
     Indication: SEASONAL ALLERGY
     Route: 048
  6. MOMETASONE FUROATE [Concomitant]
     Indication: SEASONAL ALLERGY

REACTIONS (1)
  - ACCIDENTAL EXPOSURE [None]
